FAERS Safety Report 6168242-5 (Version None)
Quarter: 2009Q2

REPORT INFORMATION
  Report Type: 
  Country: None (occurrence: None)
  Receive Date: 20090423
  Receipt Date: 20090423
  Transmission Date: 20091009
  Serious: Yes (Other)
  Sender: FDA-Public Use
  Company Number: None

PATIENT
  Age: 11 Year
  Sex: Male
  Weight: 29.4838 kg

DRUGS (2)
  1. OCEAN POTION SUNCARE SPF 50 SUN + SKIN CAR RESEARCH, INC. [Suspect]
     Indication: PROPHYLAXIS AGAINST SOLAR RADIATION
     Dates: start: 20090325, end: 20090325
  2. .. [Suspect]

REACTIONS (5)
  - PAIN [None]
  - PRODUCT SUBSTITUTION ISSUE [None]
  - PRURITUS [None]
  - SKIN EXFOLIATION [None]
  - SUNBURN [None]
